FAERS Safety Report 4468295-6 (Version None)
Quarter: 2004Q4

REPORT INFORMATION
  Report Type: 
  Country: None (occurrence: None)
  Receive Date: 20041007
  Receipt Date: 20041005
  Transmission Date: 20050328
  Serious: Yes (Life-Threatening, Hospitalization)
  Sender: FDA-Public Use
  Company Number: DE-MERCK-0410DEU00130

PATIENT
  Age: 71 Year
  Sex: Male

DRUGS (1)
  1. VIOXX [Suspect]
     Indication: HIP ARTHROPLASTY
     Route: 048
     Dates: start: 20010101, end: 20030101

REACTIONS (1)
  - CARDIAC ARREST [None]
